FAERS Safety Report 19240788 (Version 1)
Quarter: 2021Q2

REPORT INFORMATION
  Report Type: Spontaneous
  Country: US (occurrence: US)
  Receive Date: 20210510
  Receipt Date: 20210510
  Transmission Date: 20210717
  Serious: Yes (Hospitalization, Other)
  Sender: FDA-Public Use
  Company Number: US-AMGEN-USASP2021066511

PATIENT
  Age: 63 Year
  Sex: Female

DRUGS (2)
  1. INFLIXIMAB [Suspect]
     Active Substance: INFLIXIMAB
     Indication: INFLAMMATORY BOWEL DISEASE
     Dosage: UNK
     Route: 065
  2. RITUXIMAB. [Suspect]
     Active Substance: RITUXIMAB
     Indication: LUPUS ENCEPHALITIS
     Dosage: UNK UNK, QWK
     Route: 065

REACTIONS (12)
  - Antinuclear antibody positive [Unknown]
  - Off label use [Unknown]
  - Psychiatric symptom [Unknown]
  - Pressure of speech [Recovered/Resolved]
  - Hallucination, visual [Recovered/Resolved]
  - Inflammatory bowel disease [Unknown]
  - Rehabilitation therapy [Unknown]
  - Arthritis [Unknown]
  - Mania [Unknown]
  - Drug effective for unapproved indication [Unknown]
  - Mucosal ulceration [Unknown]
  - Serositis [Unknown]
